FAERS Safety Report 14038769 (Version 2)
Quarter: 2017Q4

REPORT INFORMATION
  Report Type: Spontaneous
  Country: JP (occurrence: JP)
  Receive Date: 20171004
  Receipt Date: 20171010
  Transmission Date: 20180321
  Serious: Yes (Other)
  Sender: FDA-Public Use
  Company Number: JP-PFIZER INC-2017423450

PATIENT
  Age: 79 Year
  Sex: Male

DRUGS (1)
  1. PACLITAXEL. [Suspect]
     Active Substance: PACLITAXEL
     Indication: ANGINA PECTORIS
     Dosage: UNK (TWO PACLITAXEL-ELUTING STENTS)

REACTIONS (2)
  - Product use in unapproved indication [Unknown]
  - Arteriosclerosis coronary artery [Recovered/Resolved]
